FAERS Safety Report 21390175 (Version 1)
Quarter: 2022Q3

REPORT INFORMATION
  Report Type: Spontaneous
  Country: SI (occurrence: SI)
  Receive Date: 20220929
  Receipt Date: 20220929
  Transmission Date: 20221027
  Serious: Yes (Other)
  Sender: FDA-Public Use
  Company Number: SI-NOVARTISPH-NVSC2022SI216129

PATIENT
  Age: 63 Year
  Sex: Female

DRUGS (2)
  1. BISOPROLOL [Suspect]
     Active Substance: BISOPROLOL
     Indication: Hypertension
     Dosage: 1.25 MG
     Route: 065
  2. VALSARTAN [Suspect]
     Active Substance: VALSARTAN
     Indication: Hypertension
     Dosage: 160 MG
     Route: 065

REACTIONS (6)
  - Extrasystoles [Unknown]
  - Blood pressure increased [Unknown]
  - Vertigo [Unknown]
  - Dizziness [Unknown]
  - Asthenia [Unknown]
  - Heart rate decreased [Unknown]
